FAERS Safety Report 20798009 (Version 3)
Quarter: 2022Q4

REPORT INFORMATION
  Report Type: Report from Study
  Country: US (occurrence: US)
  Receive Date: 20220506
  Receipt Date: 20221214
  Transmission Date: 20230112
  Serious: Yes (Other)
  Sender: FDA-Public Use
  Company Number: US-ABBVIE-22K-163-4381579-00

PATIENT
  Age: 72 Year
  Sex: Male
  Weight: 91.625 kg

DRUGS (7)
  1. HUMIRA [Suspect]
     Active Substance: ADALIMUMAB
     Indication: Psoriasis
     Dosage: FORM STRENGTH 40 MILLIGRAM
     Route: 058
     Dates: start: 2014
  2. HUMIRA [Suspect]
     Active Substance: ADALIMUMAB
     Dosage: FORM STRENGTH 40 MILLIGRAM
     Route: 058
  3. HUMIRA [Suspect]
     Active Substance: ADALIMUMAB
     Dosage: FORM STRENGTH 40 MILLIGRAM
     Route: 058
  4. PFIZER-BIONTECH COVID-19 VACCINE [Concomitant]
     Active Substance: TOZINAMERAN
     Indication: COVID-19 immunisation
     Dosage: TIME INTERVAL: 1 TOTAL: ONE INN ONCE
     Route: 030
  5. PFIZER-BIONTECH COVID-19 VACCINE [Concomitant]
     Active Substance: TOZINAMERAN
     Indication: COVID-19 immunisation
     Dosage: TIME INTERVAL: 1 TOTAL: BOOSTER DOSE, ONE IN ONCE
     Route: 030
  6. LIPITOR [Concomitant]
     Active Substance: ATORVASTATIN CALCIUM
     Indication: Blood cholesterol increased
  7. ASPIRIN [Concomitant]
     Active Substance: ASPIRIN
     Indication: Hypertension

REACTIONS (7)
  - Skin mass [Recovered/Resolved]
  - Psoriasis [Not Recovered/Not Resolved]
  - Post procedural complication [Unknown]
  - Lipoma [Recovered/Resolved]
  - Dermal cyst [Recovered/Resolved]
  - Postoperative wound infection [Recovered/Resolved]
  - Drug ineffective [Not Recovered/Not Resolved]

NARRATIVE: CASE EVENT DATE: 20220301
